FAERS Safety Report 21389396 (Version 1)
Quarter: 2022Q3

REPORT INFORMATION
  Report Type: Spontaneous
  Country: US (occurrence: US)
  Receive Date: 20220929
  Receipt Date: 20220929
  Transmission Date: 20221026
  Serious: No
  Sender: FDA-Public Use
  Company Number: US-RECORDATI RARE DISEASES INC.-2021003899

PATIENT
  Age: 25 Year
  Sex: Female

DRUGS (1)
  1. PANHEMATIN [Suspect]
     Active Substance: HEMIN
     Indication: Porphyria
     Dosage: 280 MILLIGRAM, ONCE EVERY 28 DAYS
     Route: 042
     Dates: start: 2019, end: 20210916

REACTIONS (4)
  - Product dose omission issue [Unknown]
  - Patient uncooperative [Unknown]
  - Off label use [Unknown]
  - No adverse event [Unknown]

NARRATIVE: CASE EVENT DATE: 20210916
